FAERS Safety Report 22032160 (Version 1)
Quarter: 2023Q1

REPORT INFORMATION
  Report Type: Spontaneous
  Country: US (occurrence: US)
  Receive Date: 20230224
  Receipt Date: 20230224
  Transmission Date: 20230417
  Serious: Yes (Hospitalization, Other)
  Sender: FDA-Public Use
  Company Number: US-PDX-000104

PATIENT
  Age: 75 Year
  Sex: Female

DRUGS (2)
  1. METOPROLOL SUCCINATE [Suspect]
     Active Substance: METOPROLOL SUCCINATE
     Indication: Atrial fibrillation
     Route: 065
  2. DILTIAZEM [Suspect]
     Active Substance: DILTIAZEM
     Indication: Atrial fibrillation
     Route: 065

REACTIONS (5)
  - BRASH syndrome [Recovered/Resolved]
  - Pulmonary oedema [Unknown]
  - Toxicity to various agents [Unknown]
  - Pneumonia [Unknown]
  - Drug ineffective for unapproved indication [Unknown]
